FAERS Safety Report 6507509-5 (Version None)
Quarter: 2009Q4

REPORT INFORMATION
  Report Type: 
  Country: None (occurrence: None)
  Receive Date: 20091216
  Receipt Date: 20091209
  Transmission Date: 20100525
  Serious: Yes (Other)
  Sender: FDA-Public Use
  Company Number: 1000010299

PATIENT
  Age: 49 Year
  Sex: Female

DRUGS (4)
  1. ARMOUR THYROID (THYROID) (90 MILLIGRAM, TABLETS) [Suspect]
     Indication: AUTOIMMUNE THYROIDITIS
     Dosage: 180 MG (90 MG, 2 IN 1 D), ORAL
     Route: 048
     Dates: start: 20090801, end: 20090801
  2. LYRICA [Concomitant]
  3. SEROQUEL [Concomitant]
  4. KLONOPIN [Concomitant]

REACTIONS (9)
  - ACCIDENTAL OVERDOSE [None]
  - ALOPECIA [None]
  - ASTHENIA [None]
  - DYSPNOEA [None]
  - FATIGUE [None]
  - INFLUENZA LIKE ILLNESS [None]
  - PAIN [None]
  - VERTIGO [None]
  - WEIGHT DECREASED [None]
